FAERS Safety Report 7509861-0 (Version None)
Quarter: 2011Q2

REPORT INFORMATION
  Report Type: 
  Country: None (occurrence: None)
  Receive Date: 20110527
  Receipt Date: 20110519
  Transmission Date: 20111010
  Serious: Yes (Hospitalization)
  Sender: FDA-Public Use
  Company Number: B0720268A

PATIENT
  Sex: Female

DRUGS (6)
  1. ARIXTRA [Suspect]
     Indication: VENOUS THROMBOSIS
     Dosage: 5MG PER DAY
     Route: 058
     Dates: start: 20110315, end: 20110325
  2. NEXIUM [Concomitant]
     Dosage: 20MG PER DAY
     Route: 048
     Dates: start: 20110304, end: 20110404
  3. HEMIGOXINE NATIVELLE [Concomitant]
     Dosage: .125MG PER DAY
     Route: 048
     Dates: start: 20110304, end: 20110404
  4. ACETAMINOPHEN AND CODEINE PHOSPHATE [Concomitant]
     Dosage: 2TAB THREE TIMES PER DAY
     Route: 048
     Dates: start: 20110311, end: 20110404
  5. ALPRAZOLAM [Concomitant]
     Dosage: .125MG PER DAY
     Route: 048
     Dates: start: 20110303, end: 20110403
  6. FORLAX [Concomitant]
     Dosage: 20G PER DAY
     Route: 048
     Dates: start: 20110318, end: 20110404

REACTIONS (2)
  - HAEMATOMA [None]
  - PAIN [None]
